FAERS Safety Report 5025375-4 (Version None)
Quarter: 2006Q2

REPORT INFORMATION
  Report Type: 
  Country: None (occurrence: None)
  Receive Date: 20060426
  Receipt Date: 20060110
  Transmission Date: 20061013
  Serious: Yes (Other)
  Sender: FDA-Public Use
  Company Number: 2006006343

PATIENT
  Age: 49 Year
  Sex: Female

DRUGS (3)
  1. LYRICA [Suspect]
     Indication: NEUROPATHY PERIPHERAL
     Dosage: 150 MG (75 MG, 2 IN 1 D)
     Dates: start: 20060110
  2. FLEXERIL [Concomitant]
  3. ATENOLOL [Concomitant]

REACTIONS (3)
  - FEELING HOT [None]
  - PARAESTHESIA [None]
  - RESTLESSNESS [None]
